FAERS Safety Report 9563042 (Version 1)
Quarter: 2013Q3

REPORT INFORMATION
  Report Type: Spontaneous
  Country: US (occurrence: US)
  Receive Date: 20130927
  Receipt Date: 20130927
  Transmission Date: 20140515
  Serious: No
  Sender: FDA-Public Use
  Company Number: US-BRISTOL-MYERS SQUIBB COMPANY-16856080

PATIENT
  Age: 80 Year
  Sex: Male
  Weight: 82.08 kg

DRUGS (2)
  1. ONGLYZA TABS 5 MG [Suspect]
  2. L-CARNOSINE [Suspect]

REACTIONS (1)
  - Visual impairment [Unknown]
